FAERS Safety Report 22196410 (Version 1)
Quarter: 2023Q2

REPORT INFORMATION
  Report Type: Spontaneous
  Country: GB (occurrence: GB)
  Receive Date: 20230411
  Receipt Date: 20230411
  Transmission Date: 20230721
  Serious: Yes (Other)
  Sender: FDA-Public Use
  Company Number: None

PATIENT
  Age: 75 Year
  Sex: Male
  Weight: 93 kg

DRUGS (7)
  1. RAMIPRIL [Suspect]
     Active Substance: RAMIPRIL
     Indication: Product used for unknown indication
     Dosage: FOR BLOOD PRESSURE
     Dates: start: 20220701
  2. CALCIUM\CHOLECALCIFEROL [Concomitant]
     Active Substance: CALCIUM\CHOLECALCIFEROL
     Dosage: 1 EVERY DAY
     Dates: start: 20181003
  3. CANDESARTAN [Concomitant]
     Active Substance: CANDESARTAN
     Dosage: TAKE ONE ONCE DAILY
     Dates: start: 20220824
  4. CLOPIDOGREL [Concomitant]
     Active Substance: CLOPIDOGREL BISULFATE
     Dosage: TAKE ONE TABLET DAILY
     Dates: start: 20211029
  5. INDAPAMIDE [Concomitant]
     Active Substance: INDAPAMIDE
     Dosage: TAKE ONE DAILY
     Dates: start: 20181003
  6. RAMIPRIL [Concomitant]
     Active Substance: RAMIPRIL
     Dosage: TAKE ONE DAILY FOR BLOOD PRESSURE
     Dates: start: 20220701, end: 20220824
  7. ROSUVASTATIN [Concomitant]
     Active Substance: ROSUVASTATIN
     Dosage: TAKE ONE DAILY
     Dates: start: 20181003

REACTIONS (2)
  - Enlarged uvula [Unknown]
  - Cough [Unknown]
